FAERS Safety Report 9812069 (Version 1)
Quarter: 2014Q1

REPORT INFORMATION
  Report Type: Spontaneous
  Country: US (occurrence: US)
  Receive Date: 20140111
  Receipt Date: 20140111
  Transmission Date: 20141002
  Serious: Yes (Death)
  Sender: FDA-Public Use
  Company Number: US-ASTRAZENECA-2014SE01737

PATIENT
  Age: 47 Year
  Sex: Male

DRUGS (8)
  1. LISINOPRIL [Suspect]
     Route: 048
  2. AMLODIPINE [Suspect]
     Route: 065
  3. COCAINE [Suspect]
     Route: 065
  4. TRAZODONE [Suspect]
     Route: 065
  5. RISPERIDONE [Suspect]
     Route: 065
  6. BENZOTROPINE [Suspect]
     Route: 065
  7. BENZONATATE [Suspect]
     Route: 065
  8. CHLORTHALIDONE [Suspect]
     Route: 065

REACTIONS (2)
  - Toxicity to various agents [Fatal]
  - Completed suicide [Fatal]
